FAERS Safety Report 6227022-2 (Version None)
Quarter: 2009Q2

REPORT INFORMATION
  Report Type: 
  Country: None (occurrence: None)
  Receive Date: 20090612
  Receipt Date: 20090609
  Transmission Date: 20091009
  Serious: Yes (Hospitalization)
  Sender: FDA-Public Use
  Company Number: AU-BAYER-200922661GPV

PATIENT
  Age: 74 Year
  Sex: Male
  Weight: 77 kg

DRUGS (11)
  1. FLUDARABINE PHOSPHATE [Suspect]
     Indication: CHRONIC LYMPHOCYTIC LEUKAEMIA
     Route: 048
  2. MABTHERA [Suspect]
     Indication: CHRONIC LYMPHOCYTIC LEUKAEMIA
     Route: 042
     Dates: start: 20090604
  3. CYCLOPHOSPHAMIDE [Suspect]
     Indication: CHRONIC LYMPHOCYTIC LEUKAEMIA
  4. METOPROLOL SUCCINATE [Concomitant]
  5. METFORMIN HYDROCHLORIDE [Concomitant]
  6. ASPIRIN [Concomitant]
  7. AMLODIPINE [Concomitant]
  8. ZOCOR [Concomitant]
  9. HYDROCORTISONE [Concomitant]
     Dates: start: 20090604, end: 20090604
  10. ACETAMINOPHEN [Concomitant]
     Dates: start: 20090604, end: 20090604
  11. PHENERGAN [Concomitant]
     Dates: start: 20090604, end: 20090604

REACTIONS (3)
  - CONFUSIONAL STATE [None]
  - DIPLEGIA [None]
  - PYREXIA [None]
